FAERS Safety Report 7672380-5 (Version None)
Quarter: 2011Q3

REPORT INFORMATION
  Report Type: 
  Country: None (occurrence: None)
  Receive Date: 20110804
  Receipt Date: 20110725
  Transmission Date: 20111222
  Serious: Yes (Life-Threatening, Hospitalization, Disabling)
  Sender: FDA-Public Use
  Company Number: 883668

PATIENT
  Age: 67 Year
  Sex: Male

DRUGS (5)
  1. AVASTIN [Suspect]
     Indication: RECTAL CANCER
     Dosage: INTRAVENOUS
     Route: 042
  2. OXALIPLATIN [Suspect]
     Indication: RECTAL CANCER
     Dosage: 260 MG, INTRAVENOUS
     Route: 042
     Dates: start: 20101221
  3. OXALIPLATIN [Suspect]
     Indication: RECTAL CANCER
     Dosage: 260 MG, INTRAVENOUS
     Route: 042
     Dates: start: 20110111
  4. XELODA [Suspect]
     Indication: RECTAL CANCER
     Dosage: ORAL
     Route: 048
  5. OXALIPLATIN [Suspect]
     Indication: RECTAL CANCER
     Dosage: 260 MG, INTRAVENOUS
     Route: 042
     Dates: start: 20101221

REACTIONS (1)
  - RECTAL PERFORATION [None]
